FAERS Safety Report 10235728 (Version 1)
Quarter: 2014Q1

REPORT INFORMATION
  Report Type: Spontaneous
  Country: US (occurrence: None)
  Receive Date: 20140306
  Receipt Date: 20140306
  Transmission Date: 20141002
  Serious: Yes (Hospitalization)
  Sender: FDA-Public Use
  Company Number: 163-21880-13111282

PATIENT
  Sex: Female

DRUGS (4)
  1. REVLIMID [Suspect]
     Indication: MYELODYSPLASTIC SYNDROME
     Dosage: 5 MG, 14 IN 14 D, PO
     Route: 048
     Dates: start: 20110118
  2. CALCIUM + VITAMIN D3 (CALCIUM D3) [Concomitant]
  3. BUDESONIDE (BUDESONIDE) [Concomitant]
  4. NIFEDIPINE (NIFEDIPINE) (NIFEDIPINE) [Concomitant]

REACTIONS (1)
  - Localised infection [None]
